FAERS Safety Report 8851103 (Version 3)
Quarter: 2013Q2

REPORT INFORMATION
  Report Type: Report from Study
  Country: JP (occurrence: JP)
  Receive Date: 20121019
  Receipt Date: 20130426
  Transmission Date: 20140414
  Serious: Yes (Other)
  Sender: FDA-Public Use
  Company Number: JP-VERTEX PHARMACEUTICAL INC.-2012-023144

PATIENT
  Age: 61 Year
  Sex: Male

DRUGS (12)
  1. VX-950 (TELAPREVIR) [Suspect]
     Indication: CHRONIC HEPATITIS C
     Dosage: 2250 MG, QD
     Route: 048
     Dates: start: 20120409, end: 20120508
  2. VX-950 (TELAPREVIR) [Suspect]
     Dosage: 1500 MG, QD
     Route: 048
     Dates: start: 20120509, end: 20120704
  3. PEGINTRON [Suspect]
     Indication: CHRONIC HEPATITIS C
     Dosage: 1.5 ?G/KG, QW
     Route: 058
     Dates: start: 20120409, end: 20120912
  4. REBETOL [Suspect]
     Indication: CHRONIC HEPATITIS C
     Dosage: 800 MG, QD
     Route: 048
     Dates: start: 20120409, end: 20120425
  5. REBETOL [Suspect]
     Dosage: 400 MG, QD
     Route: 048
     Dates: start: 20120426, end: 20120518
  6. REBETOL [Suspect]
     Dosage: 200 MG, QD
     Route: 048
     Dates: start: 20120519, end: 20120801
  7. ACINON [Concomitant]
     Dosage: 300 MG, QD
     Route: 048
     Dates: start: 20120413, end: 20120502
  8. ACINON [Concomitant]
     Dosage: 150 MG, QD
     Route: 048
     Dates: start: 20120503
  9. ONEALFA [Concomitant]
     Dosage: 0.5 ?G, QD
     Route: 048
     Dates: start: 20120419, end: 20120424
  10. ALFAROL [Concomitant]
     Dosage: 0.25 ?G, QD
     Route: 048
     Dates: start: 20120425
  11. BLOPRESS [Concomitant]
     Dosage: 4 MG, QD
     Route: 048
     Dates: start: 20120725, end: 20120822
  12. TENORMIN [Concomitant]
     Dosage: 25 MG, QD
     Route: 048
     Dates: start: 20120314, end: 20120724

REACTIONS (1)
  - Delirium [Recovered/Resolved]
